FAERS Safety Report 5364742-6 (Version None)
Quarter: 2007Q2

REPORT INFORMATION
  Report Type: 
  Country: None (occurrence: None)
  Receive Date: 20070530
  Receipt Date: 20070312
  Transmission Date: 20071010
  Serious: No
  Sender: FDA-Public Use
  Company Number: 2006PV009255

PATIENT
  Age: 56 Year
  Sex: Female
  Weight: 91.6266 kg

DRUGS (11)
  1. BYETTA [Suspect]
     Indication: DIABETES MELLITUS NON-INSULIN-DEPENDENT
     Dosage: 10 MCG; BID; SC, 5 MCG; BID; SC, 5 MCG; BID; SC
     Route: 058
     Dates: start: 20060101, end: 20060101
  2. BYETTA [Suspect]
     Indication: DIABETES MELLITUS NON-INSULIN-DEPENDENT
     Dosage: 10 MCG; BID; SC, 5 MCG; BID; SC, 5 MCG; BID; SC
     Route: 058
     Dates: start: 20051201
  3. BYETTA [Suspect]
     Indication: DIABETES MELLITUS NON-INSULIN-DEPENDENT
     Dosage: 10 MCG; BID; SC, 5 MCG; BID; SC, 5 MCG; BID; SC
     Route: 058
     Dates: start: 20060201
  4. GLUCOPHAGE [Concomitant]
  5. PRECOSE [Concomitant]
  6. AMARYL [Concomitant]
  7. AVANDAMET [Concomitant]
  8. VISTARIL [Concomitant]
  9. VISTARIL [Concomitant]
  10. DIGOXIN [Concomitant]
  11. AMARYL [Concomitant]

REACTIONS (4)
  - BLOOD GLUCOSE INCREASED [None]
  - DIZZINESS [None]
  - VOMITING [None]
  - WEIGHT DECREASED [None]
